FAERS Safety Report 25048967 (Version 1)
Quarter: 2025Q1

REPORT INFORMATION
  Report Type: Spontaneous
  Country: DE (occurrence: DE)
  Receive Date: 20250307
  Receipt Date: 20250307
  Transmission Date: 20250409
  Serious: Yes (Hospitalization, Other)
  Sender: JOHNSON AND JOHNSON
  Company Number: DE-JNJFOC-20250279586

PATIENT
  Sex: Male

DRUGS (1)
  1. SPRAVATO [Suspect]
     Active Substance: ESKETAMINE
     Indication: Depression
     Route: 045
     Dates: start: 2024

REACTIONS (4)
  - Hospitalisation [Unknown]
  - Mental impairment [Unknown]
  - Anxiety [Unknown]
  - Panic disorder [Unknown]

NARRATIVE: CASE EVENT DATE: 20241001
